FAERS Safety Report 16246331 (Version 5)
Quarter: 2019Q3

REPORT INFORMATION
  Report Type: Report from Study
  Country: AU (occurrence: AU)
  Receive Date: 20190426
  Receipt Date: 20190711
  Transmission Date: 20191004
  Serious: Yes (Other)
  Sender: FDA-Public Use
  Company Number: AU-BRISTOL-MYERS SQUIBB COMPANY-BMS-2018-106635

PATIENT
  Age: 67 Year
  Sex: Male

DRUGS (5)
  1. NIVOLUMAB [Suspect]
     Active Substance: NIVOLUMAB
     Indication: MALIGNANT MELANOMA
     Dosage: 260 MG, FORTNIGHTLY
     Route: 042
  2. NIVOLUMAB [Suspect]
     Active Substance: NIVOLUMAB
     Indication: PRODUCT USED FOR UNKNOWN INDICATION
     Dosage: 280 MILLIGRAM, FORTNIGHTLY
     Route: 042
  3. ENDONE [Suspect]
     Active Substance: OXYCODONE HYDROCHLORIDE
     Indication: NEOPLASM
     Route: 065
  4. PANADEINE FORTE [Concomitant]
     Active Substance: ACETAMINOPHEN\CODEINE PHOSPHATE
     Indication: PRODUCT USED FOR UNKNOWN INDICATION
     Dosage: UNK
     Route: 065
  5. ENDONE [Suspect]
     Active Substance: OXYCODONE HYDROCHLORIDE
     Indication: BACK PAIN
     Route: 065

REACTIONS (20)
  - Cataract [Unknown]
  - Malignant neoplasm progression [Unknown]
  - Occult blood positive [Unknown]
  - Back pain [Recovering/Resolving]
  - Fatigue [Unknown]
  - Asthenia [Unknown]
  - Foreign body in eye [Recovered/Resolved]
  - Muscular weakness [Unknown]
  - Joint injury [Unknown]
  - Skin ulcer [Not Recovered/Not Resolved]
  - Limb injury [Recovering/Resolving]
  - Contusion [Recovering/Resolving]
  - Sunburn [Recovered/Resolved]
  - Pain in extremity [Unknown]
  - Eye pain [Recovered/Resolved]
  - Haematochezia [Unknown]
  - Neoplasm [Unknown]
  - Musculoskeletal pain [Recovering/Resolving]
  - Arthritis [Unknown]
  - Somnolence [Unknown]

NARRATIVE: CASE EVENT DATE: 20181030
